FAERS Safety Report 17839026 (Version 1)
Quarter: 2020Q2

REPORT INFORMATION
  Report Type: Spontaneous
  Country: AF (occurrence: AF)
  Receive Date: 20200528
  Receipt Date: 20200528
  Transmission Date: 20200714
  Serious: Yes (Death)
  Sender: FDA-Public Use
  Company Number: None

PATIENT
  Age: 88 Year
  Sex: Female
  Weight: 88.2 kg

DRUGS (5)
  1. AZTREONAM. [Concomitant]
     Active Substance: AZTREONAM
     Dates: start: 20200518, end: 20200518
  2. REMDESIVIR. [Suspect]
     Active Substance: REMDESIVIR
     Indication: COVID-19
     Route: 041
     Dates: start: 20200518, end: 20200521
  3. AZITHROMYCIN ANHYDROUS. [Concomitant]
     Active Substance: AZITHROMYCIN ANHYDROUS
     Dates: start: 20200511, end: 20200521
  4. CEFTRIAXONE. [Concomitant]
     Active Substance: CEFTRIAXONE
     Dates: start: 20200511, end: 20200518
  5. PUMOZYNE [Concomitant]
     Dates: start: 20200521, end: 20200521

REACTIONS (3)
  - Hypoxia [None]
  - Hypotension [None]
  - Skin discolouration [None]

NARRATIVE: CASE EVENT DATE: 20200522
